FAERS Safety Report 6254056-4 (Version None)
Quarter: 2009Q3

REPORT INFORMATION
  Report Type: 
  Country: None (occurrence: None)
  Receive Date: 20090702
  Receipt Date: 20090623
  Transmission Date: 20100115
  Serious: Yes (Hospitalization)
  Sender: FDA-Public Use
  Company Number: US-JNJFOC-20090608291

PATIENT
  Sex: Male
  Weight: 151.96 kg

DRUGS (6)
  1. RISPERDAL [Suspect]
     Indication: SCHIZOPHRENIA, PARANOID TYPE
     Dosage: 3 TABLETS IN MORNING AND 1 TABLET IN EVENING
     Route: 048
  2. RISPERIDONE [Suspect]
     Indication: SCHIZOPHRENIA, PARANOID TYPE
     Dosage: 3 TABLETS IN MORNING AND 1 TABLET IN EVENING
     Route: 048
  3. NEURONTIN [Suspect]
     Indication: SCHIZOPHRENIA, PARANOID TYPE
     Route: 048
  4. SEROQUEL [Suspect]
     Indication: BIPOLAR DISORDER
     Route: 048
  5. COGENTIN [Concomitant]
     Indication: ADVERSE DRUG REACTION
     Route: 048
  6. LORATADINE [Concomitant]
     Indication: MULTIPLE ALLERGIES
     Route: 048

REACTIONS (3)
  - DISORIENTATION [None]
  - HALLUCINATION [None]
  - SELF INJURIOUS BEHAVIOUR [None]
